FAERS Safety Report 9601760 (Version 1)
Quarter: 2013Q4

REPORT INFORMATION
  Report Type: Spontaneous
  Country: FR (occurrence: FR)
  Receive Date: 20131007
  Receipt Date: 20131007
  Transmission Date: 20140711
  Serious: Yes (Other)
  Sender: FDA-Public Use
  Company Number: FR-JNJFOC-20131001906

PATIENT
  Age: 59 Year
  Sex: Male

DRUGS (2)
  1. IMODIUM [Suspect]
     Indication: DIARRHOEA
     Dosage: 1 OR 2 CAPSULES PER DAY
     Route: 048
  2. IMODIUM [Suspect]
     Indication: DIARRHOEA
     Dosage: 1 OR 2 CAPSULES PER DAY
     Route: 048

REACTIONS (3)
  - Urinary retention [Unknown]
  - Bladder dilatation [Unknown]
  - Prostatic adenoma [Unknown]
